FAERS Safety Report 17932162 (Version 2)
Quarter: 2020Q3

REPORT INFORMATION
  Report Type: Spontaneous
  Country: US (occurrence: US)
  Receive Date: 20200623
  Receipt Date: 20200709
  Transmission Date: 20201103
  Serious: Yes (Hospitalization)
  Sender: FDA-Public Use
  Company Number: US-TEVA-2020-US-1790302

PATIENT
  Age: 28 Year
  Sex: Female

DRUGS (1)
  1. FENTANYL. [Suspect]
     Active Substance: FENTANYL
     Dosage: FORM OF ADMINISTRATION: UNKNOWN
     Route: 065

REACTIONS (2)
  - Overdose [Unknown]
  - Toxic leukoencephalopathy [Recovering/Resolving]
